FAERS Safety Report 23934198 (Version 5)
Quarter: 2025Q2

REPORT INFORMATION
  Report Type: Report from Study
  Country: CA (occurrence: CA)
  Receive Date: 20240603
  Receipt Date: 20250408
  Transmission Date: 20250717
  Serious: Yes (Hospitalization, Other)
  Sender: TAKEDA
  Company Number: CA-TAKEDA-2024TUS052115

PATIENT
  Sex: Female

DRUGS (14)
  1. VEDOLIZUMAB [Suspect]
     Active Substance: VEDOLIZUMAB
     Indication: Crohn^s disease
  2. VEDOLIZUMAB [Suspect]
     Active Substance: VEDOLIZUMAB
  3. VEDOLIZUMAB [Suspect]
     Active Substance: VEDOLIZUMAB
  4. SYNTHROID [Concomitant]
     Active Substance: LEVOTHYROXINE SODIUM
     Dosage: 0.075 MILLIGRAM, QD
  5. ALENDRONATE [Concomitant]
     Active Substance: ALENDRONATE SODIUM
  6. METHOTREXATE [Concomitant]
     Active Substance: METHOTREXATE
  7. MORPHINE [Concomitant]
     Active Substance: MORPHINE
  8. AMLODIPINE [Concomitant]
     Active Substance: AMLODIPINE BESYLATE
  9. FOLIC ACID [Concomitant]
     Active Substance: FOLIC ACID
  10. PANTOPRAZOLE [Concomitant]
     Active Substance: PANTOPRAZOLE
  11. FUROSEMIDE [Concomitant]
     Active Substance: FUROSEMIDE
  12. APIXABAN [Concomitant]
     Active Substance: APIXABAN
  13. SERTRALINE [Concomitant]
     Active Substance: SERTRALINE HYDROCHLORIDE
  14. CARBIDOPA\LEVODOPA [Concomitant]
     Active Substance: CARBIDOPA\LEVODOPA

REACTIONS (14)
  - Mitral valve incompetence [Unknown]
  - Hand fracture [Unknown]
  - Balance disorder [Unknown]
  - Joint injury [Unknown]
  - Vertigo [Unknown]
  - Fall [Recovered/Resolved]
  - Parkinson^s disease [Not Recovered/Not Resolved]
  - Limb injury [Unknown]
  - Muscle spasms [Unknown]
  - Pain in extremity [Unknown]
  - Back pain [Recovered/Resolved]
  - Oedema [Unknown]
  - Mobility decreased [Unknown]
  - Corneal disorder [Unknown]
